FAERS Safety Report 16056418 (Version 7)
Quarter: 2021Q3

REPORT INFORMATION
  Report Type: Other
  Country: US (occurrence: US)
  Receive Date: 20190311
  Receipt Date: 20210917
  Transmission Date: 20211014
  Serious: Yes (Life-Threatening, Hospitalization)
  Sender: FDA-Public Use
  Company Number: US-ROCHE-2276501

PATIENT
  Age: 68 Year
  Sex: Female
  Weight: 61.29 kg

DRUGS (8)
  1. OCREVUS [Suspect]
     Active Substance: OCRELIZUMAB
     Indication: PRIMARY PROGRESSIVE MULTIPLE SCLEROSIS
     Dosage: 300 MG ON WEEK 0 AND WEEK 2 AND 600 MG ONCE IN SIX MONTHS.
     Route: 042
     Dates: start: 2016
  2. BACLOFEN. [Concomitant]
     Active Substance: BACLOFEN
     Dosage: 1/2 PILL MORNING AND EVENING 1 PILL
  3. CARBAMAZEPINE. [Concomitant]
     Active Substance: CARBAMAZEPINE
  4. QUETIAPINE. [Concomitant]
     Active Substance: QUETIAPINE
     Dosage: ATA NIGHT
  5. OCREVUS [Suspect]
     Active Substance: OCRELIZUMAB
     Dosage: DATE OF TREATMENTS: 09/MAY/2017, 23/MAY/2017 AND 14/NOV/2017?LAST INFUSION RECEIVED ON 25/MAY/2018
     Route: 042
     Dates: start: 201705
  6. ACETAMINOPHEN;OXYCODONE [Concomitant]
     Active Substance: ACETAMINOPHEN\OXYCODONE HYDROCHLORIDE
     Dosage: IN THE MORNING
  7. LEXAPRO [Concomitant]
     Active Substance: ESCITALOPRAM OXALATE
     Indication: DEPRESSION
     Dosage: IN THE MORNING; ONGOING : YES
  8. GABAPENTINE [Concomitant]
     Active Substance: GABAPENTIN

REACTIONS (19)
  - Fatigue [Unknown]
  - Condition aggravated [Unknown]
  - Wound [Not Recovered/Not Resolved]
  - Decubitus ulcer [Not Recovered/Not Resolved]
  - Lung disorder [Unknown]
  - Osteomyelitis [Not Recovered/Not Resolved]
  - Somnolence [Recovered/Resolved]
  - Urinary tract infection [Recovered/Resolved]
  - Pain in extremity [Recovering/Resolving]
  - Pyrexia [Unknown]
  - Hypotension [Recovered/Resolved]
  - Trigeminal neuralgia [Unknown]
  - Paraesthesia [Unknown]
  - Swelling face [Not Recovered/Not Resolved]
  - Pleural effusion [Not Recovered/Not Resolved]
  - Sepsis [Unknown]
  - Delirium [Not Recovered/Not Resolved]
  - Infection [Unknown]
  - Hypoaesthesia [Not Recovered/Not Resolved]

NARRATIVE: CASE EVENT DATE: 201811
